FAERS Safety Report 7382498-2 (Version None)
Quarter: 2011Q1

REPORT INFORMATION
  Report Type: 
  Country: None (occurrence: None)
  Receive Date: 20110329
  Receipt Date: 20110317
  Transmission Date: 20110831
  Serious: Yes (Life-Threatening, Hospitalization)
  Sender: FDA-Public Use
  Company Number: CA-BAYER-2011-024618

PATIENT
  Age: 46 Year
  Sex: Female

DRUGS (1)
  1. MIRENA [Suspect]
     Route: 015

REACTIONS (4)
  - BACTEROIDES TEST POSITIVE [None]
  - PELVIC PAIN [None]
  - ACTINOMYCES TEST POSITIVE [None]
  - PEPTOSTREPTOCOCCUS TEST POSITIVE [None]
